FAERS Safety Report 17398846 (Version 1)
Quarter: 2020Q1

REPORT INFORMATION
  Report Type: Report from Study
  Country: US (occurrence: US)
  Receive Date: 20200210
  Receipt Date: 20200210
  Transmission Date: 20200409
  Serious: Yes (Hospitalization)
  Sender: FDA-Public Use
  Company Number: US-ACTELION-A-NJ2019-194648

PATIENT
  Age: 72 Year
  Sex: Male
  Weight: 140.14 kg

DRUGS (5)
  1. XARELTO [Concomitant]
     Active Substance: RIVAROXABAN
  2. LASIX [Concomitant]
     Active Substance: FUROSEMIDE
     Dosage: UNK
     Dates: start: 20190814
  3. SILDENAFIL CITRATE. [Concomitant]
     Active Substance: SILDENAFIL CITRATE
  4. OPSUMIT [Suspect]
     Active Substance: MACITENTAN
     Indication: PULMONARY HYPERTENSION
     Dosage: 10 MG, QD
     Route: 048
     Dates: start: 20190708
  5. DILTIAZEM. [Concomitant]
     Active Substance: DILTIAZEM

REACTIONS (14)
  - Oedema peripheral [Recovered/Resolved]
  - Arrhythmia [Recovered/Resolved]
  - Presyncope [Recovered/Resolved]
  - Colonoscopy [Unknown]
  - Chills [Unknown]
  - Somnolence [Unknown]
  - Ventricular tachycardia [Recovered/Resolved]
  - Tremor [Unknown]
  - Fluid retention [Recovered/Resolved]
  - Pyrexia [Unknown]
  - Fluid overload [Recovered/Resolved]
  - Dyspnoea [Recovered/Resolved]
  - Post procedural complication [Unknown]
  - Memory impairment [Unknown]

NARRATIVE: CASE EVENT DATE: 20190814
